FAERS Safety Report 19173361 (Version 1)
Quarter: 2021Q2

REPORT INFORMATION
  Report Type: Spontaneous
  Country: CA (occurrence: CA)
  Receive Date: 20210423
  Receipt Date: 20210423
  Transmission Date: 20210717
  Serious: Yes (Death, Hospitalization)
  Sender: FDA-Public Use
  Company Number: CA-EISAI MEDICAL RESEARCH-EC-2021-091480

PATIENT
  Sex: Male
  Weight: 75 kg

DRUGS (12)
  1. SANDOZ IRBESARTAN [Suspect]
     Active Substance: IRBESARTAN
     Indication: PRODUCT USED FOR UNKNOWN INDICATION
     Route: 048
  2. STATEX/MORPHINE SULFATE [Concomitant]
     Dosage: FREQUENCY UNKNOWN
  3. RABEPRAZOLE [Suspect]
     Active Substance: RABEPRAZOLE
     Indication: PRODUCT USED FOR UNKNOWN INDICATION
     Route: 048
  4. RIVA?BACLOFEN [Concomitant]
     Indication: PRODUCT USED FOR UNKNOWN INDICATION
  5. INLYTA [Concomitant]
     Active Substance: AXITINIB
     Indication: RENAL CELL CARCINOMA
     Route: 048
  6. STATEX/MORPHINE SULFATE [Concomitant]
     Indication: PAIN
  7. RIVA PREGABALIN [Concomitant]
     Indication: PRODUCT USED FOR UNKNOWN INDICATION
     Route: 048
  8. VENOFER [Concomitant]
     Active Substance: IRON SUCROSE
     Indication: PRODUCT USED FOR UNKNOWN INDICATION
     Dosage: FREQUENCY UNKNOWN
     Route: 042
  9. SYNTHROID [Concomitant]
     Active Substance: LEVOTHYROXINE SODIUM
     Indication: THYROID THERAPY
  10. JAMP DICYCLOMINE HCL [Concomitant]
     Indication: PRODUCT USED FOR UNKNOWN INDICATION
  11. PROCHLORAZINE [Concomitant]
     Indication: PRODUCT USED FOR UNKNOWN INDICATION
  12. INLYTA [Concomitant]
     Active Substance: AXITINIB
     Route: 048

REACTIONS (12)
  - Arteriosclerosis [Fatal]
  - Metastatic renal cell carcinoma [Fatal]
  - Renal failure [Fatal]
  - Blood bilirubin increased [Fatal]
  - Cellulitis [Fatal]
  - Diabetes mellitus [Fatal]
  - Drug hypersensitivity [Fatal]
  - Pain [Fatal]
  - Hypothyroidism [Fatal]
  - Dyslipidaemia [Fatal]
  - General physical health deterioration [Fatal]
  - Hypertension [Fatal]
